FAERS Safety Report 6504699-5 (Version None)
Quarter: 2009Q4

REPORT INFORMATION
  Report Type: 
  Country: None (occurrence: None)
  Receive Date: 20091218
  Receipt Date: 20090820
  Transmission Date: 20100525
  Serious: No
  Sender: FDA-Public Use
  Company Number: A0777121A

PATIENT
  Age: 59 Year
  Sex: Female
  Weight: 45.9 kg

DRUGS (5)
  1. PROMACTA [Suspect]
     Indication: IDIOPATHIC THROMBOCYTOPENIC PURPURA
     Dosage: 50MG PER DAY
     Route: 048
     Dates: start: 20090326, end: 20090330
  2. CALCIUM [Suspect]
     Indication: DRUG USE FOR UNKNOWN INDICATION
     Route: 048
  3. PREDNISONE [Concomitant]
     Dosage: 5MG PER DAY
     Route: 048
  4. HYDROCODONE BITARTRATE AND ACETAMINOPHEN [Concomitant]
     Route: 048
  5. LIPITOR [Concomitant]
     Dosage: 20MG PER DAY
     Route: 048

REACTIONS (2)
  - BURNING SENSATION [None]
  - DIZZINESS [None]
